FAERS Safety Report 25859233 (Version 1)
Quarter: 2025Q3

REPORT INFORMATION
  Report Type: Report from Study
  Country: US (occurrence: US)
  Receive Date: 20250929
  Receipt Date: 20250929
  Transmission Date: 20251020
  Serious: Yes (Hospitalization)
  Sender: PFIZER
  Company Number: US-PFIZER INC-PV202500115072

PATIENT
  Age: 53 Year
  Sex: Female

DRUGS (4)
  1. BRAFTOVI [Suspect]
     Active Substance: ENCORAFENIB
     Indication: Malignant sweat gland neoplasm
     Dosage: 450 MG, 1X/DAY
     Route: 048
     Dates: start: 20250822, end: 20250912
  2. BRAFTOVI [Suspect]
     Active Substance: ENCORAFENIB
     Dosage: 450 MG, 1X/DAY
     Route: 048
     Dates: start: 20250916
  3. MEKTOVI [Suspect]
     Active Substance: BINIMETINIB
     Indication: Malignant sweat gland neoplasm
     Dosage: 45 MG, 2X/DAY
     Route: 048
     Dates: start: 20250822, end: 20250912
  4. MEKTOVI [Suspect]
     Active Substance: BINIMETINIB
     Dosage: 45 MG, 2X/DAY
     Route: 048
     Dates: start: 20250916

REACTIONS (7)
  - Fatigue [Recovering/Resolving]
  - Diarrhoea [Recovering/Resolving]
  - Chills [Recovered/Resolved]
  - Pyrexia [Recovered/Resolved]
  - Hypotension [Recovered/Resolved]
  - Escherichia test positive [Recovered/Resolved]
  - Off label use [Unknown]

NARRATIVE: CASE EVENT DATE: 20250101
